FAERS Safety Report 7289147-2 (Version None)
Quarter: 2011Q1

REPORT INFORMATION
  Report Type: 
  Country: None (occurrence: None)
  Receive Date: 20110211
  Receipt Date: 20110207
  Transmission Date: 20110831
  Serious: No
  Sender: FDA-Public Use
  Company Number: US-PFIZER INC-2011027456

PATIENT
  Sex: Female
  Weight: 68.027 kg

DRUGS (1)
  1. GEODON [Suspect]
     Indication: DEPRESSION
     Dosage: 40 MG, 1X/DAY
     Route: 048
     Dates: start: 20101101

REACTIONS (1)
  - PANIC REACTION [None]
